FAERS Safety Report 7055365-1 (Version None)
Quarter: 2010Q4

REPORT INFORMATION
  Report Type: 
  Country: None (occurrence: None)
  Receive Date: 20101019
  Receipt Date: 20101019
  Transmission Date: 20110411
  Serious: Yes (Other)
  Sender: FDA-Public Use
  Company Number: None

PATIENT
  Age: 46 Year
  Sex: Female
  Weight: 60.782 kg

DRUGS (1)
  1. BIAXIN [Suspect]
     Indication: BRONCHITIS
     Dosage: 1 TABLET 2 X DAILY PO
     Route: 048
     Dates: start: 20090319, end: 20090325

REACTIONS (10)
  - DEAFNESS [None]
  - DYSGEUSIA [None]
  - DYSSTASIA [None]
  - MIDDLE EAR DISORDER [None]
  - MIGRAINE [None]
  - NERVE INJURY [None]
  - PARAESTHESIA [None]
  - TINNITUS [None]
  - TUNNEL VISION [None]
  - VERTIGO [None]
